FAERS Safety Report 15819903 (Version 7)
Quarter: 2021Q2

REPORT INFORMATION
  Report Type: Spontaneous
  Country: JP (occurrence: JP)
  Receive Date: 20190114
  Receipt Date: 20210629
  Transmission Date: 20210716
  Serious: Yes (Hospitalization, Other)
  Sender: FDA-Public Use
  Company Number: JP-BRISTOL-MYERS SQUIBB COMPANY-BMS-2018-062501

PATIENT
  Age: 71 Year
  Sex: Male
  Weight: 73 kg

DRUGS (5)
  1. OPDIVO [Suspect]
     Active Substance: NIVOLUMAB
     Dosage: 1 MILLIGRAM/KILOGRAM
     Route: 041
     Dates: start: 20181116, end: 20181116
  2. OPDIVO [Suspect]
     Active Substance: NIVOLUMAB
     Dosage: 240 MILLIGRAM, Q2WK
     Route: 065
  3. OPDIVO [Suspect]
     Active Substance: NIVOLUMAB
     Indication: MALIGNANT MELANOMA
     Dosage: 1 MILLIGRAM/KILOGRAM, Q3WK
     Route: 041
     Dates: start: 20180629, end: 20180810
  4. YERVOY [Suspect]
     Active Substance: IPILIMUMAB
     Dosage: 3 MILLIGRAM/KILOGRAM
     Route: 041
     Dates: start: 20181116, end: 20181116
  5. YERVOY [Suspect]
     Active Substance: IPILIMUMAB
     Indication: MALIGNANT MELANOMA
     Dosage: 3 MILLIGRAM/KILOGRAM, Q3WK
     Route: 041
     Dates: start: 20180629, end: 20180810

REACTIONS (9)
  - Pruritus [Recovered/Resolved]
  - Hypothyroidism [Recovered/Resolved]
  - Liver disorder [Recovered/Resolved]
  - Injection site reaction [Recovered/Resolved]
  - Dermatitis acneiform [Recovering/Resolving]
  - Pyrexia [Recovered/Resolved]
  - Intestinal obstruction [Recovered/Resolved]
  - Thyroid function test abnormal [Unknown]
  - Adrenal insufficiency [Unknown]

NARRATIVE: CASE EVENT DATE: 20180629
